FAERS Safety Report 21573200 (Version 2)
Quarter: 2022Q4

REPORT INFORMATION
  Report Type: Report from Study
  Country: IE (occurrence: IE)
  Receive Date: 20221109
  Receipt Date: 20221203
  Transmission Date: 20230113
  Serious: Yes (Other)
  Sender: FDA-Public Use
  Company Number: IE-ABBVIE-4155196

PATIENT
  Age: 76 Year
  Sex: Female

DRUGS (14)
  1. CARBIDOPA\LEVODOPA [Suspect]
     Active Substance: CARBIDOPA\LEVODOPA
     Indication: Parkinson^s disease
     Dosage: 1 CASSETTE?CONTINUOUS
     Route: 050
     Dates: start: 2022, end: 202210
  2. CARBIDOPA\LEVODOPA [Suspect]
     Active Substance: CARBIDOPA\LEVODOPA
  3. CARBIDOPA\LEVODOPA [Suspect]
     Active Substance: CARBIDOPA\LEVODOPA
     Dosage: 1 CASSETTE
     Route: 050
     Dates: start: 20220923, end: 20220930
  4. CARBIDOPA\LEVODOPA [Suspect]
     Active Substance: CARBIDOPA\LEVODOPA
     Dosage: CONTINUOUS DOSE 1.6ML/PH
     Route: 050
     Dates: start: 202210, end: 202211
  5. CARBIDOPA\LEVODOPA [Suspect]
     Active Substance: CARBIDOPA\LEVODOPA
     Dosage: 1 CASSETTE, END DATE 2022
     Route: 050
     Dates: start: 20220930
  6. CARBIDOPA\LEVODOPA [Suspect]
     Active Substance: CARBIDOPA\LEVODOPA
     Dosage: CONTINUOUS DOSE 1.8ML/HR ; MORNING DOSE 7.3ML
     Route: 050
     Dates: start: 202211
  7. SINEMET [Concomitant]
     Active Substance: CARBIDOPA\LEVODOPA
     Indication: Product used for unknown indication
     Dosage: AS PER PRESCRIPTION, SINEMET PLUS
     Route: 050
  8. Covid-19 vaccine [Concomitant]
     Indication: COVID-19 immunisation
     Dosage: BOOSTER
     Route: 030
     Dates: start: 20221009, end: 20221009
  9. Covid-19 vaccine [Concomitant]
     Indication: COVID-19 immunisation
     Dosage: 1 IN ONCE ?2ND DOSE
     Route: 030
  10. Covid-19 vaccine [Concomitant]
     Indication: COVID-19 immunisation
     Dosage: 1 IN ONCE ?1ST DOSE
     Route: 030
  11. LEXAPRO [Concomitant]
     Active Substance: ESCITALOPRAM OXALATE
     Indication: Product used for unknown indication
     Dosage: INCREASED TO 30 MG
  12. LEXAPRO [Concomitant]
     Active Substance: ESCITALOPRAM OXALATE
     Indication: Product used for unknown indication
     Dosage: UNKNOWN DOSE
  13. INFLUENZA VIRUS VACCINE [Concomitant]
     Active Substance: INFLUENZA VIRUS VACCINE
     Indication: Product used for unknown indication
     Dates: start: 20221009
  14. SINEMET [Concomitant]
     Active Substance: CARBIDOPA\LEVODOPA
     Indication: Product used for unknown indication
     Dosage: 62.5 MG

REACTIONS (16)
  - Catatonia [Not Recovered/Not Resolved]
  - Abdominal discomfort [Recovered/Resolved]
  - Stoma site erythema [Recovered/Resolved]
  - Depressed mood [Recovering/Resolving]
  - Blood sodium decreased [Recovered/Resolved]
  - Stoma site discharge [Unknown]
  - Bowel movement irregularity [Recovered/Resolved]
  - Drug ineffective [Not Recovered/Not Resolved]
  - General physical condition abnormal [Recovering/Resolving]
  - Stoma site pain [Recovered/Resolved]
  - Tremor [Recovered/Resolved]
  - On and off phenomenon [Recovering/Resolving]
  - Musculoskeletal disorder [Recovering/Resolving]
  - Bradykinesia [Recovering/Resolving]
  - Tremor [Recovering/Resolving]
  - Lethargy [Recovering/Resolving]

NARRATIVE: CASE EVENT DATE: 20220101
